FAERS Safety Report 4383938-3 (Version None)
Quarter: 2004Q2

REPORT INFORMATION
  Report Type: 
  Country: None (occurrence: None)
  Receive Date: 20040624
  Receipt Date: 20040511
  Transmission Date: 20050107
  Serious: Yes (Hospitalization, Other)
  Sender: FDA-Public Use
  Company Number: PHNU2004DE01815

PATIENT
  Age: 55 Year
  Sex: Female
  Weight: 71 kg

DRUGS (5)
  1. ZOMETA [Suspect]
     Indication: BREAST CANCER METASTATIC
     Dosage: 4 MG, QMO
     Route: 042
     Dates: start: 20021025, end: 20040422
  2. DICLO-DIVIDO [Concomitant]
     Route: 048
     Dates: start: 20010820, end: 20030826
  3. FARLUTAL [Concomitant]
     Route: 065
     Dates: start: 20020409, end: 20030314
  4. DIHYDROCODEINE [Concomitant]
     Route: 048
     Dates: start: 20010823, end: 20030815
  5. TAXOTERE [Concomitant]
     Dates: start: 20030512

REACTIONS (15)
  - ACTINOMYCOSIS [None]
  - ANAESTHESIA [None]
  - BIOPSY BONE ABNORMAL [None]
  - BONE LESION [None]
  - C-REACTIVE PROTEIN INCREASED [None]
  - INFLAMMATION [None]
  - ORAL SURGERY [None]
  - OSTEOLYSIS [None]
  - OSTEOMYELITIS [None]
  - OSTEONECROSIS [None]
  - OSTEOTOMY [None]
  - RED BLOOD CELL SEDIMENTATION RATE INCREASED [None]
  - SEQUESTRECTOMY [None]
  - TOOTH DISORDER [None]
  - TOOTH EXTRACTION [None]
